FAERS Safety Report 13870019 (Version 1)
Quarter: 2017Q3

REPORT INFORMATION
  Report Type: Spontaneous
  Country: US (occurrence: US)
  Receive Date: 20170815
  Receipt Date: 20170815
  Transmission Date: 20171127
  Serious: No
  Sender: FDA-Public Use
  Company Number: US-BEH-2017082712

PATIENT
  Age: 35 Year
  Sex: Male

DRUGS (2)
  1. HIZENTRA [Suspect]
     Active Substance: HUMAN IMMUNOGLOBULIN G
     Indication: POLYNEUROPATHY
     Dosage: 14 G (70 ML), QW ON SUNDAYS
     Route: 058
     Dates: start: 20160105
  2. HIZENTRA [Suspect]
     Active Substance: HUMAN IMMUNOGLOBULIN G
     Dosage: 16 G (80 ML), QW ON WEDNESDAYS
     Route: 058
     Dates: start: 20160105

REACTIONS (2)
  - Muscle twitching [Unknown]
  - Asthenia [Unknown]

NARRATIVE: CASE EVENT DATE: 20170607
